FAERS Safety Report 8183348-7 (Version None)
Quarter: 2012Q1

REPORT INFORMATION
  Report Type: 
  Country: None (occurrence: None)
  Receive Date: 20120305
  Receipt Date: 20120221
  Transmission Date: 20120608
  Serious: Yes (Hospitalization, Other)
  Sender: FDA-Public Use
  Company Number: US-ELI_LILLY_AND_COMPANY-US201110008198

PATIENT
  Sex: Male

DRUGS (4)
  1. HUMALOG [Suspect]
     Dosage: UNK, UNKNOWN
  2. HUMALOG MIX 75/25 [Suspect]
     Dosage: UNK, UNKNOWN
  3. LANTUS [Concomitant]
     Dosage: UNK
  4. LEVEMIR [Concomitant]

REACTIONS (2)
  - ANAPHYLACTIC REACTION [None]
  - MASTOCYTOSIS [None]
